FAERS Safety Report 9948684 (Version 1)
Quarter: 2014Q1

REPORT INFORMATION
  Report Type: Spontaneous
  Country: US (occurrence: None)
  Receive Date: 20140122
  Receipt Date: 20140122
  Transmission Date: 20141002
  Serious: Yes (Other)
  Sender: FDA-Public Use
  Company Number: AEGR000227

PATIENT
  Age: 30 Year
  Sex: Male

DRUGS (2)
  1. JUXTAPID [Suspect]
     Indication: TYPE IIA HYPERLIPIDAEMIA
     Route: 048
     Dates: start: 20130930, end: 201311
  2. LIPITOR (ATORVASTATIN CALCIUM) [Concomitant]

REACTIONS (1)
  - Liver function test abnormal [None]
